FAERS Safety Report 5912547-7 (Version None)
Quarter: 2008Q4

REPORT INFORMATION
  Report Type: 
  Country: None (occurrence: None)
  Receive Date: 20081008
  Receipt Date: 20080925
  Transmission Date: 20090506
  Serious: Yes (Other)
  Sender: FDA-Public Use
  Company Number: US-AMGEN-US311665

PATIENT
  Sex: Male
  Weight: 2.1 kg

DRUGS (4)
  1. ENBREL [Suspect]
     Indication: PSORIATIC ARTHROPATHY
     Route: 064
     Dates: start: 20050301
  2. PREDNISONE TAB [Concomitant]
     Route: 064
  3. PSYLLIUM HYDROPHILIC MUCILLOID [Concomitant]
     Route: 064
  4. FAMOTIDINE [Concomitant]
     Route: 064

REACTIONS (3)
  - FOETAL HEART RATE DECELERATION [None]
  - PREMATURE BABY [None]
  - SMALL FOR DATES BABY [None]
